FAERS Safety Report 8340449-8 (Version None)
Quarter: 2012Q2

REPORT INFORMATION
  Report Type: 
  Country: None (occurrence: None)
  Receive Date: 20120502
  Receipt Date: 20120502
  Transmission Date: 20120825
  Serious: Yes (Hospitalization, Other)
  Sender: FDA-Public Use
  Company Number: None

PATIENT
  Age: 15 Year
  Sex: Female
  Weight: 72.2 kg

DRUGS (2)
  1. LAMOTRIGINE [Suspect]
     Indication: CONVULSION
     Dosage: 2 TABS BID PO
     Route: 048
     Dates: start: 20120101, end: 20120301
  2. LAMOTRIGINE [Suspect]
     Indication: CONVULSION
     Dosage: 2 TABS BID PO
     Route: 048
     Dates: start: 20120101, end: 20120301

REACTIONS (4)
  - CONVULSION [None]
  - PRODUCT SUBSTITUTION ISSUE [None]
  - NO THERAPEUTIC RESPONSE [None]
  - PRODUCT QUALITY ISSUE [None]
